FAERS Safety Report 12204503 (Version 1)
Quarter: 2016Q1

REPORT INFORMATION
  Report Type: Spontaneous
  Country: US (occurrence: None)
  Receive Date: 20160322
  Receipt Date: 20160322
  Transmission Date: 20160526
  Serious: Yes (Hospitalization)
  Sender: FDA-Public Use
  Company Number: None

PATIENT
  Age: 65 Year
  Sex: Male

DRUGS (2)
  1. MORPHINE SR [Suspect]
     Active Substance: MORPHINE
  2. OXYCODONE 15 MG [Suspect]
     Active Substance: OXYCODONE

REACTIONS (1)
  - Sedation [None]

NARRATIVE: CASE EVENT DATE: 20150119
